FAERS Safety Report 20691777 (Version 2)
Quarter: 2022Q2

REPORT INFORMATION
  Report Type: Report from Study
  Country: AT (occurrence: AT)
  Receive Date: 20220408
  Receipt Date: 20220512
  Transmission Date: 20220720
  Serious: Yes (Death, Life-Threatening, Hospitalization, Disabling, Other)
  Sender: FDA-Public Use
  Company Number: AT-JCAR017-FOL-001-4501005-20220121-0004SG

PATIENT
  Age: 71 Year
  Sex: Male
  Weight: 88 kg

DRUGS (71)
  1. LISOCABTAGENE MARALEUCEL [Suspect]
     Active Substance: LISOCABTAGENE MARALEUCEL
     Indication: Marginal zone lymphoma
     Dosage: 100 X 10^6 CAR+ T CELLS X ONCE
     Route: 042
     Dates: start: 20211210, end: 20211210
  2. LISOCABTAGENE MARALEUCEL [Suspect]
     Active Substance: LISOCABTAGENE MARALEUCEL
  3. LISOCABTAGENE MARALEUCEL [Suspect]
     Active Substance: LISOCABTAGENE MARALEUCEL
  4. FLUDARABINE [Suspect]
     Active Substance: FLUDARABINE PHOSPHATE
     Indication: Marginal zone lymphoma
     Dosage: FREQUENCY TEXT: ONCE?30 MG X ONCE
     Route: 042
     Dates: start: 20211201, end: 20211202
  5. FLUDARABINE [Suspect]
     Active Substance: FLUDARABINE PHOSPHATE
     Route: 042
     Dates: start: 20211206, end: 20211206
  6. FLUDARABINE [Suspect]
     Active Substance: FLUDARABINE PHOSPHATE
  7. CYCLOPHOSPHAMIDE [Suspect]
     Active Substance: CYCLOPHOSPHAMIDE
     Indication: Marginal zone lymphoma
     Route: 042
     Dates: start: 20211201, end: 20211202
  8. CYCLOPHOSPHAMIDE [Suspect]
     Active Substance: CYCLOPHOSPHAMIDE
     Route: 042
     Dates: start: 20211206, end: 20211206
  9. CYCLOPHOSPHAMIDE [Suspect]
     Active Substance: CYCLOPHOSPHAMIDE
  10. EMPAGLIFLOZIN [Concomitant]
     Active Substance: EMPAGLIFLOZIN
     Indication: Diabetes mellitus
     Dosage: 10 MG
     Route: 048
     Dates: start: 2012, end: 20220105
  11. INSULIN GLARGINE [Concomitant]
     Active Substance: INSULIN GLARGINE
     Indication: Type 2 diabetes mellitus
     Dosage: 16 IU
     Route: 003
     Dates: start: 2007
  12. INSULIN GLARGINE [Concomitant]
     Active Substance: INSULIN GLARGINE
  13. INSULIN GLARGINE [Concomitant]
     Active Substance: INSULIN GLARGINE
  14. INSULIN GLARGINE [Concomitant]
     Active Substance: INSULIN GLARGINE
  15. CALCIUM GLUCONATE [Concomitant]
     Active Substance: CALCIUM GLUCONATE
     Indication: Prophylaxis
     Dosage: 1 DOSAGE FORM =2 AMPULE?FREQUENCY : ONCE
     Route: 048
     Dates: start: 20220103, end: 20220103
  16. CALCIUM GLUCONATE [Concomitant]
     Active Substance: CALCIUM GLUCONATE
  17. CALCIUM GLUCONATE [Concomitant]
     Active Substance: CALCIUM GLUCONATE
  18. CALCIUM GLUCONATE [Concomitant]
     Active Substance: CALCIUM GLUCONATE
  19. LACTULOSE [Concomitant]
     Active Substance: LACTULOSE
     Indication: Prophylaxis
     Dosage: 1 CUP?FREQUENCY : ONCE
     Route: 048
     Dates: start: 20220108, end: 20220108
  20. MICAFUNGIN [Concomitant]
     Active Substance: MICAFUNGIN
     Indication: Prophylaxis
     Dosage: 100 MG
     Route: 042
     Dates: start: 20220120, end: 20220124
  21. MICAFUNGIN [Concomitant]
     Active Substance: MICAFUNGIN
  22. MICAFUNGIN [Concomitant]
     Active Substance: MICAFUNGIN
  23. MICAFUNGIN [Concomitant]
     Active Substance: MICAFUNGIN
  24. PANTOPRAZOLE [Concomitant]
     Active Substance: PANTOPRAZOLE
     Indication: Prophylaxis
     Dosage: 40 MG
     Route: 048
     Dates: start: 20211216, end: 20220114
  25. POSACONAZOLE [Concomitant]
     Active Substance: POSACONAZOLE
     Indication: Prophylaxis
     Dosage: 100 MG
     Route: 048
     Dates: start: 20211214, end: 20220104
  26. POSACONAZOLE [Concomitant]
     Active Substance: POSACONAZOLE
     Dosage: 100 MG
     Route: 048
     Dates: start: 20211223, end: 20220113
  27. POTASSIUM BICARBONATE [Concomitant]
     Active Substance: POTASSIUM BICARBONATE
     Indication: Prophylaxis
     Dosage: 1 SACHET?FREQUENCY : ONCE
     Route: 048
     Dates: start: 20211226, end: 20211226
  28. POTASSIUM BICARBONATE [Concomitant]
     Active Substance: POTASSIUM BICARBONATE
     Dosage: 2 SACHET
     Route: 048
     Dates: start: 20211227, end: 20211230
  29. POTASSIUM BICARBONATE [Concomitant]
     Active Substance: POTASSIUM BICARBONATE
     Dosage: 1 SACHET
     Route: 048
     Dates: start: 20211231, end: 20220104
  30. POTASSIUM BICARBONATE [Concomitant]
     Active Substance: POTASSIUM BICARBONATE
  31. PREGABALIN [Concomitant]
     Active Substance: PREGABALIN
     Indication: Product used for unknown indication
     Dosage: 25 MG
     Route: 048
     Dates: start: 20211211, end: 20220110
  32. PREGABALIN [Concomitant]
     Active Substance: PREGABALIN
     Dosage: 25 MG
     Route: 048
     Dates: start: 20220111, end: 20220114
  33. PREGABALIN [Concomitant]
     Active Substance: PREGABALIN
  34. PREGABALIN [Concomitant]
     Active Substance: PREGABALIN
  35. TROSPIUM CHLORIDE [Concomitant]
     Active Substance: TROSPIUM CHLORIDE
     Indication: Prophylaxis
     Dosage: 15 MG
     Route: 048
     Dates: start: 20211220, end: 20220105
  36. TROSPIUM CHLORIDE [Concomitant]
     Active Substance: TROSPIUM CHLORIDE
  37. TROSPIUM CHLORIDE [Concomitant]
     Active Substance: TROSPIUM CHLORIDE
  38. TROSPIUM CHLORIDE [Concomitant]
     Active Substance: TROSPIUM CHLORIDE
  39. VALACYCLOVIR HYDROCHLORIDE [Concomitant]
     Active Substance: VALACYCLOVIR HYDROCHLORIDE
     Indication: Prophylaxis
     Dosage: 500 MG
     Route: 048
     Dates: start: 20211222, end: 20220114
  40. VALACYCLOVIR HYDROCHLORIDE [Concomitant]
     Active Substance: VALACYCLOVIR HYDROCHLORIDE
  41. VALACYCLOVIR HYDROCHLORIDE [Concomitant]
     Active Substance: VALACYCLOVIR HYDROCHLORIDE
  42. VALACYCLOVIR HYDROCHLORIDE [Concomitant]
     Active Substance: VALACYCLOVIR HYDROCHLORIDE
  43. FILGRASTIM [Concomitant]
     Active Substance: FILGRASTIM
     Indication: Prophylaxis
     Dosage: 48 10^6 IU
     Route: 058
     Dates: start: 20211215, end: 20211225
  44. FILGRASTIM [Concomitant]
     Active Substance: FILGRASTIM
     Dosage: 48 10^6 IU?FREQUENCY : ONCE
     Route: 023
     Dates: start: 20211227, end: 20211227
  45. RINGERS SOLUTION [Concomitant]
     Active Substance: CALCIUM CHLORIDE\POTASSIUM CHLORIDE\SODIUM CHLORIDE
     Indication: Prophylaxis
     Dosage: 1 L?FREQUENCY : ONCE
     Route: 042
     Dates: start: 20211228, end: 20211230
  46. RINGERS SOLUTION [Concomitant]
     Active Substance: CALCIUM CHLORIDE\POTASSIUM CHLORIDE\SODIUM CHLORIDE
     Dosage: 1000 ML
     Route: 042
     Dates: start: 20220105, end: 20220105
  47. RINGERS SOLUTION [Concomitant]
     Active Substance: CALCIUM CHLORIDE\POTASSIUM CHLORIDE\SODIUM CHLORIDE
     Dosage: 100 ML/H?FREQUENCY : CONTINUOUS
     Route: 042
     Dates: start: 20220106, end: 20220107
  48. RINGERS SOLUTION [Concomitant]
     Active Substance: CALCIUM CHLORIDE\POTASSIUM CHLORIDE\SODIUM CHLORIDE
     Dosage: 1 DOSAGE FORM=80 ML/H?FREQUENCY : CONTINUOUS
     Route: 042
     Dates: start: 20220108, end: 20220114
  49. RINGERS SOLUTION [Concomitant]
     Active Substance: CALCIUM CHLORIDE\POTASSIUM CHLORIDE\SODIUM CHLORIDE
     Dosage: 1 DOSAGE FORM=50 ML/H?FREQUENCY : CONTINUOUS
     Route: 042
     Dates: start: 20220120, end: 20220121
  50. ROSUVASTATIN [Concomitant]
     Active Substance: ROSUVASTATIN
     Indication: Prophylaxis
     Dosage: 10 MG
     Route: 048
     Dates: start: 20211223, end: 20220105
  51. ROSUVASTATIN [Concomitant]
     Active Substance: ROSUVASTATIN
  52. DRONABINOL [Concomitant]
     Active Substance: DRONABINOL
     Indication: Product used for unknown indication
     Dosage: 2 GTT
     Route: 048
     Dates: start: 20220102, end: 20220105
  53. PIPERACILLIN AND TAZOBACTAM [Concomitant]
     Active Substance: PIPERACILLIN SODIUM\TAZOBACTAM SODIUM
     Indication: Prophylaxis
     Dosage: 4.5 MG X 3 X 1 DAYS
     Route: 042
     Dates: start: 20220106, end: 20220114
  54. PIPERACILLIN AND TAZOBACTAM [Concomitant]
     Active Substance: PIPERACILLIN SODIUM\TAZOBACTAM SODIUM
     Dosage: FREQUENCY TEXT: CONTINUOUS?4.5 G X CONTINUOUS
     Route: 042
     Dates: start: 20220120
  55. RINGERS SOLUTION [Concomitant]
     Active Substance: CALCIUM CHLORIDE\POTASSIUM CHLORIDE\SODIUM CHLORIDE
     Indication: Prophylaxis
     Dosage: FREQUENCY TEXT: ONCE?1 L X ONCE
     Route: 042
     Dates: start: 20211228, end: 20211230
  56. RINGERS SOLUTION [Concomitant]
     Active Substance: CALCIUM CHLORIDE\POTASSIUM CHLORIDE\SODIUM CHLORIDE
     Dosage: 1000 ML X 2 X 1 DAYS
     Route: 042
     Dates: start: 20220105, end: 20220105
  57. RINGERS SOLUTION [Concomitant]
     Active Substance: CALCIUM CHLORIDE\POTASSIUM CHLORIDE\SODIUM CHLORIDE
     Dosage: FREQUENCY TEXT: CONTINUOUS?100 ML/H X CONTINUOUS
     Route: 042
     Dates: start: 20220106, end: 20220107
  58. RINGERS SOLUTION [Concomitant]
     Active Substance: CALCIUM CHLORIDE\POTASSIUM CHLORIDE\SODIUM CHLORIDE
     Dosage: FREQUENCY TEXT: CONTINUOUS?80 ML/H X CONTINUOUS
     Route: 042
     Dates: start: 20220108, end: 20220114
  59. RINGERS SOLUTION [Concomitant]
     Active Substance: CALCIUM CHLORIDE\POTASSIUM CHLORIDE\SODIUM CHLORIDE
     Dosage: FREQUENCY TEXT: CONTINUOUS?50 ML/H X CONTINUOUS
     Route: 042
     Dates: start: 20220120, end: 20220121
  60. ROSUVASTATIN [Concomitant]
     Active Substance: ROSUVASTATIN
     Indication: Prophylaxis
     Dosage: 10 MG X 4 X 1 DAYS
     Route: 048
     Dates: start: 20211223, end: 20220105
  61. METFORMIN\SITAGLIPTIN [Concomitant]
     Active Substance: METFORMIN\SITAGLIPTIN
     Indication: Type 2 diabetes mellitus
     Dosage: 50/1000 MG X 2 X 1 DAYS
     Route: 048
     Dates: start: 20211218, end: 20220105
  62. METFORMIN\SITAGLIPTIN [Concomitant]
     Active Substance: METFORMIN\SITAGLIPTIN
  63. DRONABINOL [Concomitant]
     Active Substance: DRONABINOL
     Indication: Decreased appetite
     Dosage: 2 GTT X 3 X 1 DAYS
     Route: 048
     Dates: start: 20220102, end: 20220105
  64. DRONABINOL [Concomitant]
     Active Substance: DRONABINOL
  65. METAMIZOLE [Concomitant]
     Active Substance: METAMIZOLE
     Indication: Product used for unknown indication
     Dosage: 1 G?FREQUENCY : ONCE
     Route: 048
     Dates: start: 20220106, end: 20220106
  66. METAMIZOLE [Concomitant]
     Active Substance: METAMIZOLE
     Dosage: 1 G?FREQUENCY : ONCE
     Route: 042
     Dates: start: 20220120, end: 20220120
  67. DIPHENHYDRAMINE [Concomitant]
     Active Substance: DIPHENHYDRAMINE
     Indication: Premedication
     Dosage: FREQUENCY TEXT: ONCE?1 AMPULE X ONCE
     Route: 042
     Dates: start: 20220120, end: 20220120
  68. ALLOPURINOL [Concomitant]
     Active Substance: ALLOPURINOL
     Indication: Hyperuricaemia
     Route: 048
     Dates: start: 2007, end: 20211230
  69. ALLOPURINOL [Concomitant]
     Active Substance: ALLOPURINOL
     Route: 048
     Dates: start: 20220103, end: 20220105
  70. INSULIN ASPART [Concomitant]
     Active Substance: INSULIN ASPART
     Indication: Diabetes mellitus
     Dosage: 300 IU?FREQUENCY: OCCASIONAL
     Dates: start: 20211207, end: 20220105
  71. INSULIN ASPART [Concomitant]
     Active Substance: INSULIN ASPART
     Dosage: 0.5 ML/H
     Dates: start: 20220105

REACTIONS (1)
  - Neutropenic sepsis [Fatal]

NARRATIVE: CASE EVENT DATE: 20220120
